FAERS Safety Report 4979548-7 (Version None)
Quarter: 2006Q2

REPORT INFORMATION
  Report Type: 
  Country: None (occurrence: None)
  Receive Date: 20060421
  Receipt Date: 20060410
  Transmission Date: 20061013
  Serious: Yes (Death, Hospitalization)
  Sender: FDA-Public Use
  Company Number: CH-ROCHE-444218

PATIENT
  Age: 80 Year
  Sex: Female

DRUGS (2)
  1. XELODA [Suspect]
     Dosage: FOR FOURTEEN DAYS FOLLOWED BY A WEEK REST.
     Route: 065
  2. ZOSTEX [Interacting]
     Route: 065

REACTIONS (5)
  - DRUG INTERACTION [None]
  - ORAL TOXICITY [None]
  - SEPSIS [None]
  - SHOCK [None]
  - SKIN TOXICITY [None]
